FAERS Safety Report 8953947 (Version 3)
Quarter: 2013Q3

REPORT INFORMATION
  Report Type: Report from Study
  Country: US (occurrence: US)
  Receive Date: 20121206
  Receipt Date: 20130917
  Transmission Date: 20140515
  Serious: Yes (Death, Hospitalization, Other)
  Sender: FDA-Public Use
  Company Number: US-009507513-1212USA000088

PATIENT
  Age: 60 Year
  Sex: Male
  Weight: 68 kg

DRUGS (21)
  1. DEXAMETHASONE [Suspect]
     Indication: METASTASES TO CENTRAL NERVOUS SYSTEM
     Dosage: 2 MG, BID
     Route: 048
     Dates: start: 20120202
  2. VEMURAFENIB [Suspect]
     Indication: MALIGNANT MELANOMA
     Dosage: 960 MG, BID
     Route: 048
     Dates: start: 20120208, end: 20120314
  3. VEMURAFENIB [Suspect]
     Dosage: 960 MG, BID
     Route: 048
     Dates: start: 20120404, end: 20130426
  4. ACETAMINOPHEN [Concomitant]
     Dosage: DAILY DOSE 500 MG, PRN
     Route: 048
     Dates: start: 2001
  5. PRILOSEC [Concomitant]
     Indication: PROPHYLAXIS
     Dosage: 10 MG, BID
     Route: 048
     Dates: start: 20120202, end: 20120207
  6. PRILOSEC [Concomitant]
     Dosage: 10 MG,
     Route: 048
     Dates: start: 20120208
  7. VICODIN [Concomitant]
     Dosage: DAILY DOSE 500/50 MG, PRN
     Route: 048
     Dates: start: 201201
  8. KEPPRA [Concomitant]
     Indication: PROPHYLAXIS
     Dosage: 250 MG, BID
     Route: 048
     Dates: start: 201202, end: 20120420
  9. KEPPRA [Concomitant]
     Dosage: UNK
     Route: 042
     Dates: start: 20120420, end: 20120424
  10. KEPPRA [Concomitant]
     Dosage: 500 UNK, UNK
     Route: 048
     Dates: start: 20120424, end: 20120510
  11. PRINIVIL [Concomitant]
     Dosage: 20 MG, QD
     Route: 048
     Dates: start: 2010
  12. PRINIVIL [Concomitant]
     Dosage: 20 MG, BID
     Route: 048
     Dates: start: 20120501, end: 20120510
  13. ZANTAC [Concomitant]
     Indication: PROPHYLAXIS
     Dosage: 150 MG, QD
     Route: 048
     Dates: start: 2012
  14. LEVOFLOXACIN [Concomitant]
     Dosage: 500 MG, QD
     Dates: start: 20120314, end: 20120319
  15. DOCUSATE SODIUM [Concomitant]
     Indication: PROPHYLAXIS
     Dosage: 100 MG, QD
     Route: 048
     Dates: start: 20120319, end: 20120322
  16. DOCUSATE SODIUM [Concomitant]
     Dosage: 50 MG, BID
     Route: 048
     Dates: start: 20120501, end: 20120510
  17. HEPARIN [Concomitant]
     Indication: PROPHYLAXIS
     Dosage: 30 MG, QD
     Route: 042
     Dates: start: 20120319
  18. INSULIN LISPRO [Concomitant]
     Dosage: DAILY DOSE SLIDING SCALE, TID
     Route: 058
     Dates: start: 20120319, end: 20120322
  19. INSULIN LISPRO [Concomitant]
     Dosage: 5 IU 1D
     Route: 058
     Dates: start: 20120319, end: 20120322
  20. DEXTROSE (+) POTASSIUM CHLORIDE [Concomitant]
     Dosage: 75 ML/HR
     Route: 041
     Dates: start: 20120305, end: 20120310
  21. ROBITUSSIN AC (CODEINE PHOSPHATE (+) GUAIFENESIN) [Concomitant]
     Dosage: 4 IN 1 D
     Route: 048
     Dates: start: 201202

REACTIONS (5)
  - Post procedural infection [Recovered/Resolved]
  - Haemorrhage [Fatal]
  - Haemorrhage intracranial [Recovered/Resolved with Sequelae]
  - Brain oedema [Not Recovered/Not Resolved]
  - Convulsion [Recovered/Resolved with Sequelae]
